FAERS Safety Report 8363236-3 (Version None)
Quarter: 2012Q2

REPORT INFORMATION
  Report Type: 
  Country: None (occurrence: None)
  Receive Date: 20120516
  Receipt Date: 20111123
  Transmission Date: 20120825
  Serious: No
  Sender: FDA-Public Use
  Company Number: US-ALEXION-A201101790

PATIENT
  Sex: Male
  Weight: 85.261 kg

DRUGS (3)
  1. SOLIRIS [Suspect]
     Dosage: 600 MG, QW
     Route: 042
     Dates: start: 20110101
  2. SOLIRIS [Suspect]
     Indication: PAROXYSMAL NOCTURNAL HAEMOGLOBINURIA
     Dosage: 600 MG, QW
     Route: 042
     Dates: start: 20081021
  3. SOLIRIS [Suspect]
     Route: 042

REACTIONS (3)
  - BLOOD LACTATE DEHYDROGENASE INCREASED [None]
  - SINUS HEADACHE [None]
  - FATIGUE [None]
